FAERS Safety Report 7534291-5 (Version None)
Quarter: 2011Q2

REPORT INFORMATION
  Report Type: 
  Country: None (occurrence: None)
  Receive Date: 20110608
  Receipt Date: 20070208
  Transmission Date: 20111010
  Serious: Yes (Hospitalization)
  Sender: FDA-Public Use
  Company Number: PHHO2007IT02106

PATIENT
  Sex: Female

DRUGS (2)
  1. CARBAMAZEPINE [Suspect]
     Indication: EPILEPSY
     Dosage: 200 ML, UNK
     Route: 048
     Dates: start: 20070116, end: 20070124
  2. PHENOBARBITAL TAB [Concomitant]
     Indication: EPILEPSY
     Dosage: 75 MG, UNK
     Dates: start: 19840101

REACTIONS (3)
  - CEREBROVASCULAR ACCIDENT [None]
  - ASTHENIA [None]
  - HYPOAESTHESIA [None]
